FAERS Safety Report 4485785-0 (Version None)
Quarter: 2004Q4

REPORT INFORMATION
  Report Type: 
  Country: None (occurrence: None)
  Receive Date: 20041026
  Receipt Date: 20041013
  Transmission Date: 20050328
  Serious: Yes (Other)
  Sender: FDA-Public Use
  Company Number: JP-ROCHE-383120

PATIENT
  Age: 85 Year
  Sex: Female

DRUGS (3)
  1. ROCEPHIN [Suspect]
     Indication: PYELONEPHRITIS
     Route: 042
     Dates: start: 20041002, end: 20041002
  2. OZEX [Concomitant]
     Indication: CYSTITIS
     Route: 048
     Dates: start: 20041001, end: 20041002
  3. MAGNESIUM OXIDE [Concomitant]
     Dosage: DRUG NAME REPORTED AS MAGLAX.
     Route: 048
     Dates: start: 20041001, end: 20041001

REACTIONS (3)
  - ANAPHYLACTIC SHOCK [None]
  - BLOOD PRESSURE INCREASED [None]
  - SHOCK [None]
